FAERS Safety Report 9120885 (Version 1)
Quarter: 2013Q1

REPORT INFORMATION
  Report Type: Spontaneous
  Country: US (occurrence: US)
  Receive Date: 20130226
  Receipt Date: 20130226
  Transmission Date: 20140127
  Serious: Yes (Other)
  Sender: FDA-Public Use
  Company Number: US-GLAXOSMITHKLINE-A1013269A

PATIENT
  Sex: 0

DRUGS (2)
  1. POTIGA [Suspect]
     Indication: EPILEPSY
     Route: 048
  2. UNSPECIFIED MEDICATIONS [Concomitant]

REACTIONS (2)
  - Urinary retention [Unknown]
  - Status epilepticus [Unknown]
